FAERS Safety Report 12624475 (Version 1)
Quarter: 2016Q3

REPORT INFORMATION
  Report Type: Report from Study
  Country: US (occurrence: None)
  Receive Date: 20160803
  Receipt Date: 20160803
  Transmission Date: 20161109
  Serious: Yes (Hospitalization)
  Sender: FDA-Public Use
  Company Number: 11505215-01

PATIENT
  Age: 24 Year
  Sex: Male
  Weight: 89.81 kg

DRUGS (1)
  1. CHLORTHALIDONE 50MG [Suspect]
     Active Substance: CHLORTHALIDONE
     Indication: INVESTIGATION
     Dosage: 1-50MG TABLET ONCE PO
     Route: 048
     Dates: start: 20160707

REACTIONS (2)
  - Haemoglobin decreased [None]
  - Haematemesis [None]

NARRATIVE: CASE EVENT DATE: 20160710
